FAERS Safety Report 7321209-3 (Version None)
Quarter: 2011Q1

REPORT INFORMATION
  Report Type: 
  Country: None (occurrence: None)
  Receive Date: 20110228
  Receipt Date: 20110223
  Transmission Date: 20110831
  Serious: Yes (Hospitalization, Other)
  Sender: FDA-Public Use
  Company Number: US-JNJFOC-20100702424

PATIENT
  Sex: Male

DRUGS (1)
  1. LEVAQUIN [Suspect]
     Indication: BRONCHITIS
     Route: 048

REACTIONS (9)
  - MALAISE [None]
  - DISCOMFORT [None]
  - SWELLING [None]
  - TENDON RUPTURE [None]
  - PAIN [None]
  - ANXIETY [None]
  - PERONEAL NERVE PALSY [None]
  - QUALITY OF LIFE DECREASED [None]
  - ASTHENIA [None]
